FAERS Safety Report 26097127 (Version 1)
Quarter: 2025Q4

REPORT INFORMATION
  Report Type: Spontaneous
  Country: EU (occurrence: EU)
  Receive Date: 20251127
  Receipt Date: 20251127
  Transmission Date: 20260118
  Serious: Yes (Other)
  Sender: ABBVIE
  Company Number: EU-RICHTER-2025-GR-014919

PATIENT
  Age: 44 Year
  Sex: Female
  Weight: 59 kg

DRUGS (2)
  1. LEVONORGESTREL [Suspect]
     Active Substance: LEVONORGESTREL
     Indication: Product used for unknown indication
     Dosage: TIME INTERVAL: AS NECESSARY: 52 MG, AT AN INITIAL RELEASE RATE OF 20 MICROGRAMS/24 HOURS.
     Route: 015
     Dates: start: 20251017
  2. LEVONORGESTREL [Suspect]
     Active Substance: LEVONORGESTREL
     Dosage: TIME INTERVAL: AS NECESSARY: 52 MG, AT AN INITIAL RELEASE RATE OF 20 MICROGRAMS/24 HOURS.
     Route: 015
     Dates: start: 2025, end: 2025

REACTIONS (1)
  - Insomnia [Recovering/Resolving]

NARRATIVE: CASE EVENT DATE: 20251017
